FAERS Safety Report 5556071-2 (Version None)
Quarter: 2007Q4

REPORT INFORMATION
  Report Type: 
  Country: None (occurrence: None)
  Receive Date: 20071211
  Receipt Date: 20071126
  Transmission Date: 20080405
  Serious: Yes (Death, Life-Threatening)
  Sender: FDA-Public Use
  Company Number: US020073

PATIENT
  Sex: Male
  Weight: 120 kg

DRUGS (3)
  1. ACTIQ [Suspect]
     Indication: ARTHRALGIA
     Dosage: 1600 UG BUCCAL
     Route: 002
  2. ACTIQ [Suspect]
     Indication: BACK PAIN
     Dosage: 1600 UG BUCCAL
     Route: 002
  3. MULTIPLE OPIOIDS [Concomitant]

REACTIONS (5)
  - DRUG DEPENDENCE [None]
  - GASTRIC BYPASS [None]
  - POST PROCEDURAL COMPLICATION [None]
  - RESPIRATORY FAILURE [None]
  - TREATMENT NONCOMPLIANCE [None]
